FAERS Safety Report 13147136 (Version 2)
Quarter: 2017Q1

REPORT INFORMATION
  Report Type: Report from Study
  Country: US (occurrence: US)
  Receive Date: 20170124
  Receipt Date: 20170124
  Transmission Date: 20170428
  Serious: No
  Sender: FDA-Public Use
  Company Number: US-AMGEN-USASL2016146314

PATIENT
  Age: 57 Year
  Sex: Male

DRUGS (1)
  1. REPATHA [Suspect]
     Active Substance: EVOLOCUMAB
     Indication: BLOOD CHOLESTEROL INCREASED
     Dosage: 140 MG/ML, Q2WK
     Route: 058
     Dates: start: 20161020

REACTIONS (3)
  - Wrong technique in product usage process [Unknown]
  - Memory impairment [Not Recovered/Not Resolved]
  - Circumstance or information capable of leading to medication error [Recovered/Resolved]
